FAERS Safety Report 7370555-6 (Version None)
Quarter: 2011Q1

REPORT INFORMATION
  Report Type: 
  Country: None (occurrence: None)
  Receive Date: 20110323
  Receipt Date: 20110228
  Transmission Date: 20110831
  Serious: No
  Sender: FDA-Public Use
  Company Number: US-BAYER-2011-022440

PATIENT
  Sex: Female

DRUGS (6)
  1. ALEVE (CAPLET) [Suspect]
     Indication: BACK PAIN
     Dosage: 1 DF, ONCE
     Route: 048
     Dates: start: 20110225, end: 20110228
  2. SEROQUEL [Concomitant]
     Dosage: UNK
     Route: 048
  3. ATIVAN [Concomitant]
     Dosage: UNK
     Route: 048
  4. ARICEPT [Concomitant]
     Dosage: UNK
     Route: 048
  5. LEVOXYL [Concomitant]
     Dosage: UNK
     Route: 048
  6. TRAZODONE [Concomitant]
     Dosage: UNK
     Route: 048

REACTIONS (1)
  - GLOSSODYNIA [None]
